FAERS Safety Report 25781210 (Version 1)
Quarter: 2025Q3

REPORT INFORMATION
  Report Type: Spontaneous
  Country: US (occurrence: US)
  Receive Date: 20250909
  Receipt Date: 20250909
  Transmission Date: 20251021
  Serious: No
  Sender: SANOFI AVENTIS
  Company Number: US-SA-2025SA269413

PATIENT
  Sex: Female
  Weight: 16.33 kg

DRUGS (3)
  1. DUPIXENT [Suspect]
     Active Substance: DUPILUMAB
     Indication: Dermatitis atopic
     Dosage: 300 MG, Q4W
     Route: 058
  2. DUPIXENT [Suspect]
     Active Substance: DUPILUMAB
  3. VTAMA [Concomitant]
     Active Substance: TAPINAROF

REACTIONS (3)
  - Dermatitis atopic [Recovered/Resolved]
  - Rebound effect [Recovered/Resolved]
  - Product dose omission issue [Recovered/Resolved]
